FAERS Safety Report 7140957-1 (Version None)
Quarter: 2010Q4

REPORT INFORMATION
  Report Type: 
  Country: None (occurrence: None)
  Receive Date: 20101122
  Receipt Date: 20101115
  Transmission Date: 20110411
  Serious: Yes (Other)
  Sender: FDA-Public Use
  Company Number: DSA_44345_2010

PATIENT
  Sex: Male

DRUGS (2)
  1. XENAZINE [Suspect]
     Indication: TOURETTE'S DISORDER
     Dosage: (25 MG TID ORAL)
     Route: 048
  2. CARISOPRODOL [Concomitant]

REACTIONS (5)
  - DEPRESSION [None]
  - HOMICIDAL IDEATION [None]
  - SELF-INJURIOUS IDEATION [None]
  - SUICIDAL IDEATION [None]
  - VIOLENCE-RELATED SYMPTOM [None]
